FAERS Safety Report 24660312 (Version 2)
Quarter: 2024Q4

REPORT INFORMATION
  Report Type: Spontaneous
  Country: KR (occurrence: KR)
  Receive Date: 20241125
  Receipt Date: 20241202
  Transmission Date: 20250115
  Serious: Yes (Death)
  Sender: DAIICHI
  Company Number: KR-DSJP-DS-2024-109587-KR

PATIENT
  Age: 59 Year
  Sex: Female

DRUGS (2)
  1. TRASTUZUMAB DERUXTECAN [Suspect]
     Active Substance: TRASTUZUMAB DERUXTECAN
     Indication: Ovarian cancer
     Dosage: 200 MG
     Route: 042
     Dates: start: 20240822, end: 20240822
  2. TRASTUZUMAB DERUXTECAN [Suspect]
     Active Substance: TRASTUZUMAB DERUXTECAN
     Dosage: 200 MG
     Route: 042
     Dates: start: 20240927, end: 20240927

REACTIONS (2)
  - Ovarian cancer [Fatal]
  - Off label use [Unknown]

NARRATIVE: CASE EVENT DATE: 20241026
